FAERS Safety Report 7395165-6 (Version None)
Quarter: 2011Q2

REPORT INFORMATION
  Report Type: 
  Country: None (occurrence: None)
  Receive Date: 20110405
  Receipt Date: 20110324
  Transmission Date: 20111010
  Serious: Yes (Hospitalization)
  Sender: FDA-Public Use
  Company Number: PHHY2011FR24834

PATIENT
  Age: 60 Year
  Sex: Male

DRUGS (2)
  1. VERAPAMIL [Interacting]
     Dosage: 240 MG, UNK
  2. RASILEZ HCT [Suspect]
     Dosage: ALISKIREN 300MG AND HYDROCHLOROTHIAZIDE UNK MG
     Dates: start: 20100901

REACTIONS (1)
  - ATRIAL FIBRILLATION [None]
